FAERS Safety Report 10997771 (Version 2)
Quarter: 2015Q2

REPORT INFORMATION
  Report Type: Spontaneous
  Country: US (occurrence: US)
  Receive Date: 20150408
  Receipt Date: 20150504
  Transmission Date: 20150821
  Serious: Yes (Congenital Anomaly, Other)
  Sender: FDA-Public Use
  Company Number: US-ELI_LILLY_AND_COMPANY-US201503010405

PATIENT
  Weight: 3.9 kg

DRUGS (1)
  1. PROZAC [Suspect]
     Active Substance: FLUOXETINE HYDROCHLORIDE
     Indication: DEPRESSION
     Route: 064

REACTIONS (6)
  - Autism [Unknown]
  - Motor developmental delay [Unknown]
  - Foetal exposure during pregnancy [Recovered/Resolved]
  - Craniosynostosis [Unknown]
  - Sensory disturbance [Unknown]
  - Head circumference abnormal [Unknown]
